FAERS Safety Report 6082480-1 (Version None)
Quarter: 2009Q1

REPORT INFORMATION
  Report Type: 
  Country: None (occurrence: None)
  Receive Date: 20090218
  Receipt Date: 20090213
  Transmission Date: 20090719
  Serious: Yes (Life-Threatening)
  Sender: FDA-Public Use
  Company Number: JP-BRISTOL-MYERS SQUIBB COMPANY-14509046

PATIENT
  Age: 66 Year
  Sex: Male
  Weight: 44 kg

DRUGS (9)
  1. ERBITUX [Suspect]
     Indication: COLORECTAL CANCER RECURRENT
     Dosage: FIRST INF:(590MG/BODY) AND 2ND INF:(370 MG ) ONGOING.
     Route: 042
     Dates: start: 20081118
  2. POLARAMINE [Concomitant]
     Indication: COLORECTAL CANCER RECURRENT
     Route: 042
  3. DECADRON [Concomitant]
     Route: 042
  4. OXYCONTIN [Concomitant]
     Dosage: TABLET
     Route: 048
  5. HYPEN [Concomitant]
     Dosage: TABLET
     Route: 048
  6. RHYTHMY [Concomitant]
     Dosage: TABLET
     Route: 048
  7. MAGMITT [Concomitant]
     Dosage: TABLET
     Route: 048
  8. FERROMIA [Concomitant]
     Dosage: TABLET
     Route: 048
  9. CYANOCOBALAMIN [Concomitant]
     Dosage: TABLET
     Route: 048

REACTIONS (1)
  - DISORIENTATION [None]
